FAERS Safety Report 26009207 (Version 1)
Quarter: 2025Q4

REPORT INFORMATION
  Report Type: Spontaneous
  Country: EU (occurrence: EU)
  Receive Date: 20251107
  Receipt Date: 20251107
  Transmission Date: 20260118
  Serious: Yes (Other)
  Sender: GLAXOSMITHKLINE
  Company Number: None

PATIENT
  Age: 0 Year
  Sex: Male

DRUGS (3)
  1. ALBUTEROL [Suspect]
     Active Substance: ALBUTEROL
     Indication: Muscular weakness
     Dosage: 9 MG, QD
  2. MESTINON [Suspect]
     Active Substance: PYRIDOSTIGMINE BROMIDE
     Indication: Muscular weakness
     Dosage: 240 MG, QD (60 MG X4/DAY)
  3. FIRDAPSE [Concomitant]
     Active Substance: AMIFAMPRIDINE PHOSPHATE
     Indication: Muscular weakness
     Dosage: UNK

REACTIONS (3)
  - Bradycardia [Recovered/Resolved]
  - Foetal exposure during pregnancy [Unknown]
  - Term birth [Unknown]

NARRATIVE: CASE EVENT DATE: 20221016
